FAERS Safety Report 6390144-X (Version None)
Quarter: 2009Q4

REPORT INFORMATION
  Report Type: 
  Country: None (occurrence: None)
  Receive Date: 20091003
  Receipt Date: 20090922
  Transmission Date: 20100525
  Serious: Yes (Hospitalization)
  Sender: FDA-Public Use
  Company Number: 310011K09USA

PATIENT
  Age: 33 Year
  Sex: Female

DRUGS (2)
  1. GONAL-F [Suspect]
     Indication: INFERTILITY
     Dates: start: 20090101, end: 20090101
  2. PROGESTERONE [Concomitant]

REACTIONS (7)
  - ABDOMINAL DISTENSION [None]
  - ASCITES [None]
  - DEHYDRATION [None]
  - HYPOTENSION [None]
  - MATERNAL DRUGS AFFECTING FOETUS [None]
  - PREGNANCY TEST POSITIVE [None]
  - VOMITING [None]
